FAERS Safety Report 9092617 (Version 1)
Quarter: 2013Q1

REPORT INFORMATION
  Report Type: Spontaneous
  Country: US (occurrence: None)
  Receive Date: 20130213
  Receipt Date: 20130213
  Transmission Date: 20140127
  Serious: Yes (Death)
  Sender: FDA-Public Use
  Company Number: None

PATIENT
  Age: 28 Year
  Sex: Male
  Weight: 68.04 kg

DRUGS (2)
  1. ACETIC ACID [Suspect]
     Indication: RENAL FAILURE
     Dosage: DAILY HEMODIALYSIS
     Dates: start: 20120229, end: 20120303
  2. ACETIC ACID [Suspect]
     Indication: RENAL FAILURE
     Dosage: DAILY HEMODIALYSIS
     Dates: start: 20120229, end: 20120303

REACTIONS (8)
  - Dyspnoea [None]
  - Convulsion [None]
  - Cerebrovascular accident [None]
  - Brain death [None]
  - Body temperature decreased [None]
  - Sudden death [None]
  - Product quality issue [None]
  - Cardio-respiratory arrest [None]
